FAERS Safety Report 24047829 (Version 1)
Quarter: 2024Q3

REPORT INFORMATION
  Report Type: Spontaneous
  Country: US (occurrence: US)
  Receive Date: 20240703
  Receipt Date: 20240703
  Transmission Date: 20241017
  Serious: No
  Sender: BRISTOL MYERS SQUIBB
  Company Number: US-BRISTOL-MYERS SQUIBB COMPANY-2024-106224

PATIENT
  Age: 55 Year
  Sex: Female

DRUGS (1)
  1. ABRAXANE [Suspect]
     Active Substance: PACLITAXEL
     Indication: Breast cancer female
     Dosage: FREQ : DAY 1, DAY 8 AND DAY 15

REACTIONS (2)
  - Drug intolerance [Unknown]
  - Off label use [Unknown]
